FAERS Safety Report 16211749 (Version 2)
Quarter: 2019Q2

REPORT INFORMATION
  Report Type: Report from Study
  Country: ES (occurrence: ES)
  Receive Date: 20190418
  Receipt Date: 20190522
  Transmission Date: 20190711
  Serious: Yes (Hospitalization, Other)
  Sender: FDA-Public Use
  Company Number: ES-ROCHE-2302851

PATIENT
  Age: 65 Year
  Sex: Male
  Weight: 81.2 kg

DRUGS (2)
  1. ATEZOLIZUMAB. [Suspect]
     Active Substance: ATEZOLIZUMAB
     Indication: RENAL CELL CARCINOMA
     Dosage: DATE OF MOST RECENT DOSE PRIOR TO SAES: 09/APR/2019
     Route: 042
     Dates: start: 20190319
  2. RO6874281 (FAP IL2V MAB) [Suspect]
     Active Substance: RO-6874281
     Indication: RENAL CELL CARCINOMA
     Dosage: DATE OF MOST RECENT DOSE PRIOR TO SAES: 09/APR/2019
     Route: 042
     Dates: start: 20190319

REACTIONS (2)
  - Hepatotoxicity [Recovering/Resolving]
  - Hyperbilirubinaemia [Recovering/Resolving]

NARRATIVE: CASE EVENT DATE: 20190410
